FAERS Safety Report 9241734 (Version 1)
Quarter: 2013Q2

REPORT INFORMATION
  Report Type: Spontaneous
  Country: IT (occurrence: IT)
  Receive Date: 20130419
  Receipt Date: 20130419
  Transmission Date: 20140414
  Serious: Yes (Other)
  Sender: FDA-Public Use
  Company Number: IT-MYLANLABS-2013S1008128

PATIENT
  Age: 37 Year
  Sex: Male

DRUGS (3)
  1. FINASTERIDE [Suspect]
     Indication: ANDROGENETIC ALOPECIA
     Route: 048
     Dates: start: 1999, end: 2009
  2. LANSOPRAZOLE [Concomitant]
     Indication: GASTROOESOPHAGEAL REFLUX DISEASE
     Route: 048
  3. BROMAZEPAM [Concomitant]
     Indication: GENERALISED ANXIETY DISORDER

REACTIONS (2)
  - Infertility male [Recovered/Resolved]
  - Azoospermia [Recovering/Resolving]
